FAERS Safety Report 9012805 (Version 3)
Quarter: 2013Q2

REPORT INFORMATION
  Report Type: Spontaneous
  Country: QA (occurrence: US)
  Receive Date: 20130114
  Receipt Date: 20130606
  Transmission Date: 20140414
  Serious: Yes (Other)
  Sender: FDA-Public Use
  Company Number: QA-009507513-1301USA004547

PATIENT
  Age: 18 Year
  Sex: Female
  Weight: 70 kg

DRUGS (1)
  1. NEXPLANON [Suspect]
     Indication: CONTRACEPTION
     Dosage: 68 MG, UNK
     Route: 059
     Dates: start: 20121204, end: 20130108

REACTIONS (6)
  - Infection [Recovered/Resolved]
  - Infection [Recovered/Resolved]
  - Incision site erythema [Recovered/Resolved]
  - Implant site pustules [Unknown]
  - Device expulsion [Recovered/Resolved]
  - Device difficult to use [Unknown]
